FAERS Safety Report 9384518 (Version 1)
Quarter: 2013Q3

REPORT INFORMATION
  Report Type: Spontaneous
  Country: US (occurrence: US)
  Receive Date: 20130705
  Receipt Date: 20130705
  Transmission Date: 20140515
  Serious: Yes (Death, Hospitalization)
  Sender: FDA-Public Use
  Company Number: US-AMGEN-USASP2013041635

PATIENT
  Age: 68 Year
  Sex: Male
  Weight: 84.35 kg

DRUGS (1)
  1. ENBREL [Suspect]
     Indication: PSORIATIC ARTHROPATHY
     Dosage: 50 MG, QWK
     Route: 058
     Dates: start: 20121030, end: 20130611

REACTIONS (7)
  - Renal failure chronic [Fatal]
  - Renal failure acute [Recovering/Resolving]
  - Hepatitis alcoholic [Recovering/Resolving]
  - Mobility decreased [Not Recovered/Not Resolved]
  - Gait disturbance [Not Recovered/Not Resolved]
  - Back pain [Not Recovered/Not Resolved]
  - Arthralgia [Not Recovered/Not Resolved]
